FAERS Safety Report 8858741 (Version 3)
Quarter: 2013Q2

REPORT INFORMATION
  Report Type: Spontaneous
  Country: US (occurrence: US)
  Receive Date: 20121024
  Receipt Date: 20130417
  Transmission Date: 20140414
  Serious: Yes (Life-Threatening)
  Sender: FDA-Public Use
  Company Number: US-009507513-1210USA008593

PATIENT
  Age: 11 Year
  Sex: Male
  Weight: 46 kg

DRUGS (2)
  1. DULERA [Suspect]
     Indication: ASTHMA
     Dosage: 2 PUFF, BID
     Route: 055
     Dates: start: 201209, end: 201209
  2. DILANTIN [Concomitant]
     Indication: EPILEPSY

REACTIONS (1)
  - Convulsion [Recovered/Resolved]
